FAERS Safety Report 12632984 (Version 2)
Quarter: 2016Q3

REPORT INFORMATION
  Report Type: Spontaneous
  Country: US (occurrence: US)
  Receive Date: 20160808
  Receipt Date: 20160808
  Transmission Date: 20161109
  Serious: No
  Sender: FDA-Public Use
  Company Number: US-BEH-2016057967

PATIENT
  Sex: Female
  Weight: 41 kg

DRUGS (13)
  1. EPIPEN [Concomitant]
     Active Substance: EPINEPHRINE
  2. MELOXICAM. [Concomitant]
     Active Substance: MELOXICAM
  3. FLOVENT HFA [Concomitant]
     Active Substance: FLUTICASONE PROPIONATE
  4. LIDOCAINE. [Concomitant]
     Active Substance: LIDOCAINE
  5. VERAMYST [Concomitant]
     Active Substance: FLUTICASONE FUROATE
  6. HIZENTRA [Suspect]
     Active Substance: HUMAN IMMUNOGLOBULIN G
     Indication: HYPOGAMMAGLOBULINAEMIA
     Route: 058
  7. SINGULAIR [Concomitant]
     Active Substance: MONTELUKAST SODIUM
  8. HIZENTRA [Suspect]
     Active Substance: HUMAN IMMUNOGLOBULIN G
     Route: 058
  9. HIZENTRA [Suspect]
     Active Substance: HUMAN IMMUNOGLOBULIN G
     Route: 058
  10. DIPHENHYDRAMINE. [Concomitant]
     Active Substance: DIPHENHYDRAMINE
  11. LEVOTHYROXINE. [Concomitant]
     Active Substance: LEVOTHYROXINE
  12. RANITIDINE. [Concomitant]
     Active Substance: RANITIDINE
  13. XOPENEX HFA [Concomitant]
     Active Substance: LEVALBUTEROL TARTRATE

REACTIONS (3)
  - Nasopharyngitis [Unknown]
  - Infusion site pain [Unknown]
  - Infusion site haemorrhage [Unknown]
